FAERS Safety Report 5823062-3 (Version None)
Quarter: 2008Q3

REPORT INFORMATION
  Report Type: 
  Country: None (occurrence: None)
  Receive Date: 20080725
  Receipt Date: 20070709
  Transmission Date: 20090109
  Serious: No
  Sender: FDA-Public Use
  Company Number: US-AMGEN-KDL233516

PATIENT
  Sex: Female

DRUGS (7)
  1. PROCRIT [Suspect]
     Indication: ANAEMIA
     Dates: start: 20070501
  2. INSULIN [Concomitant]
  3. ASPIRIN [Concomitant]
  4. POTASSIUM CHLORIDE [Concomitant]
  5. ALLOPURINOL [Concomitant]
  6. LASIX [Concomitant]
  7. LOPRESSOR [Concomitant]

REACTIONS (1)
  - INJECTION SITE IRRITATION [None]
